FAERS Safety Report 24638482 (Version 1)
Quarter: 2024Q4

REPORT INFORMATION
  Report Type: Spontaneous
  Country: US (occurrence: None)
  Receive Date: 20241119
  Receipt Date: 20241119
  Transmission Date: 20250114
  Serious: Yes (Life-Threatening)
  Sender: Public
  Company Number: None

PATIENT
  Age: 71 Year
  Sex: Male
  Weight: 88 kg

DRUGS (2)
  1. PROPOFOL [Suspect]
     Active Substance: PROPOFOL
     Indication: Anaesthesia
     Dates: start: 20241017, end: 20241017
  2. CLINDAMYCIN [Suspect]
     Active Substance: CLINDAMYCIN
     Dosage: OTHER FREQUENCY : ONCE;?
     Route: 042
     Dates: start: 20241017, end: 20241017

REACTIONS (2)
  - Pulseless electrical activity [None]
  - Ventricular extrasystoles [None]

NARRATIVE: CASE EVENT DATE: 20241020
